FAERS Safety Report 7341800-8 (Version None)
Quarter: 2011Q1

REPORT INFORMATION
  Report Type: 
  Country: None (occurrence: None)
  Receive Date: 20110309
  Receipt Date: 20110301
  Transmission Date: 20110831
  Serious: Yes (Other)
  Sender: FDA-Public Use
  Company Number: US-PFIZER INC-2011010087

PATIENT
  Sex: Female

DRUGS (1)
  1. XANAX [Suspect]
     Dosage: UNK

REACTIONS (6)
  - ANGIOEDEMA [None]
  - SALIVARY HYPERSECRETION [None]
  - LYMPHADENOPATHY [None]
  - SALIVARY GLAND PAIN [None]
  - SALIVARY GLAND ENLARGEMENT [None]
  - FLUID RETENTION [None]
